FAERS Safety Report 13655620 (Version 7)
Quarter: 2017Q3

REPORT INFORMATION
  Report Type: Spontaneous
  Country: US (occurrence: US)
  Receive Date: 20170615
  Receipt Date: 20170922
  Transmission Date: 20171127
  Serious: Yes (Other)
  Sender: FDA-Public Use
  Company Number: US-PFIZER INC-2017258777

PATIENT
  Age: 68 Year
  Sex: Male
  Weight: 116.55 kg

DRUGS (2)
  1. SUTENT [Suspect]
     Active Substance: SUNITINIB MALATE
     Indication: RENAL CELL CARCINOMA STAGE IV
     Dosage: 50 MG, CYCLIC (1 CAPSULE DAILY 1-21/DAYS)
     Route: 048
     Dates: start: 20170605
  2. SUTENT [Suspect]
     Active Substance: SUNITINIB MALATE
     Dosage: 37.5 MG, CYCLIC (1 CAPSULE DAILY 3 WEEKS ON ONE WEEK OFF)
     Route: 048
     Dates: end: 20170707

REACTIONS (8)
  - Decreased appetite [Unknown]
  - Malaise [Unknown]
  - Oral pain [Unknown]
  - Haemorrhage [Recovering/Resolving]
  - Depressed mood [Recovering/Resolving]
  - Haematochezia [Unknown]
  - Insomnia [Unknown]
  - Dysgeusia [Unknown]

NARRATIVE: CASE EVENT DATE: 2017
